FAERS Safety Report 9124323 (Version 1)
Quarter: 2013Q1

REPORT INFORMATION
  Report Type: Spontaneous
  Country: US (occurrence: US)
  Receive Date: 20130227
  Receipt Date: 20130227
  Transmission Date: 20140127
  Serious: No
  Sender: FDA-Public Use
  Company Number: US-MYLANLABS-2012S1025125

PATIENT
  Sex: Male

DRUGS (1)
  1. MONTELUKAST SODIUM [Suspect]
     Indication: ASTHMA
     Dates: start: 201210, end: 201212

REACTIONS (6)
  - Drug effect decreased [Recovered/Resolved]
  - Skin test positive [Recovered/Resolved]
  - Sluggishness [Not Recovered/Not Resolved]
  - Tic [Recovered/Resolved]
  - Abnormal behaviour [Recovered/Resolved]
  - Reaction to drug excipients [Recovered/Resolved]
